FAERS Safety Report 4342042-0 (Version None)
Quarter: 2004Q1

REPORT INFORMATION
  Report Type: 
  Country: None (occurrence: None)
  Receive Date: 20040329
  Receipt Date: 20040119
  Transmission Date: 20041129
  Serious: No
  Sender: FDA-Public Use
  Company Number: 04P-163-0247532-00

PATIENT
  Age: 45 Year
  Sex: Female
  Weight: 167.8309 kg

DRUGS (5)
  1. HUMIRA [Suspect]
     Indication: PSORIATIC ARTHROPATHY
     Dosage: 40 MG, 1 IN 2 WK, SUBCUTANEOUS
     Route: 058
     Dates: start: 20040113
  2. QUINAPRIL HYDROCHLORIDE [Concomitant]
  3. DILTIAZEM [Concomitant]
  4. FUROSEMIDE [Concomitant]
  5. LORAZEPAM [Concomitant]

REACTIONS (3)
  - DYSPHAGIA [None]
  - EAR PAIN [None]
  - PHARYNGOLARYNGEAL PAIN [None]
